FAERS Safety Report 15718607 (Version 1)
Quarter: 2018Q4

REPORT INFORMATION
  Report Type: Spontaneous
  Country: US (occurrence: US)
  Receive Date: 20181129
  Receipt Date: 20181129
  Transmission Date: 20190205
  Serious: Yes (Hospitalization)
  Sender: FDA-Public Use
  Company Number: None

PATIENT
  Age: 42 Year
  Sex: Male

DRUGS (34)
  1. ISOSORB [Concomitant]
  2. OXYCODONE [Concomitant]
     Active Substance: OXYCODONE
  3. SERTRALINE [Concomitant]
     Active Substance: SERTRALINE HYDROCHLORIDE
  4. ISOSORB MONO [Concomitant]
     Active Substance: ISOSORBIDE MONONITRATE
  5. TACROLIMUS 1 MG [Suspect]
     Active Substance: TACROLIMUS
     Indication: HEART TRANSPLANT
     Route: 048
     Dates: start: 20180429
  6. MONO [Concomitant]
  7. ZOLPIDEM [Concomitant]
     Active Substance: ZOLPIDEM\ZOLPIDEM TARTRATE
  8. PROVENTIL [Concomitant]
     Active Substance: ALBUTEROL
  9. METFORMIN [Concomitant]
     Active Substance: METFORMIN HYDROCHLORIDE
  10. ROSUVASTATIN. [Concomitant]
     Active Substance: ROSUVASTATIN
  11. TRIGLIDE [Concomitant]
     Active Substance: FENOFIBRATE
  12. CARVEDILOL. [Concomitant]
     Active Substance: CARVEDILOL
  13. NARCAN [Concomitant]
     Active Substance: NALOXONE HYDROCHLORIDE
  14. MYCOPHENOLIC [Concomitant]
     Active Substance: MYCOPHENOLIC ACID
  15. ELIQUIS [Concomitant]
     Active Substance: APIXABAN
  16. HUMULIN NOS [Concomitant]
     Active Substance: INSULIN HUMAN
  17. MAG OXIDE [Concomitant]
     Active Substance: MAGNESIUM OXIDE
  18. LEVOFLOXACIN. [Concomitant]
     Active Substance: LEVOFLOXACIN
  19. PANTOPRAZOLE [Concomitant]
     Active Substance: PANTOPRAZOLE
  20. TOUJEO [Concomitant]
     Active Substance: INSULIN GLARGINE
  21. SMZ [Concomitant]
     Active Substance: SULFAMETHOXAZOLE\TRIMETHOPRIM
  22. MUPROCIN [Concomitant]
  23. FUROSEMIDE. [Concomitant]
     Active Substance: FUROSEMIDE
  24. LORAZEPAM. [Concomitant]
     Active Substance: LORAZEPAM
  25. AZITHROMYCIN ANHYDROUS. [Concomitant]
     Active Substance: AZITHROMYCIN ANHYDROUS
  26. TACROLIMUS 1 MG [Suspect]
     Active Substance: TACROLIMUS
  27. AMLODIPINE [Concomitant]
     Active Substance: AMLODIPINE BESYLATE
  28. BENZONATATE. [Concomitant]
     Active Substance: BENZONATATE
  29. VALGANCICLOV [Concomitant]
  30. PREDNISONE. [Concomitant]
     Active Substance: PREDNISONE
  31. AMODARONE [Concomitant]
  32. NITROGLYCERN [Concomitant]
  33. TIZANIDINE. [Concomitant]
     Active Substance: TIZANIDINE
  34. LYRICA [Concomitant]
     Active Substance: PREGABALIN

REACTIONS (1)
  - Complications of transplanted heart [None]
